FAERS Safety Report 7474381-9 (Version None)
Quarter: 2011Q2

REPORT INFORMATION
  Report Type: 
  Country: None (occurrence: None)
  Receive Date: 20110511
  Receipt Date: 20110428
  Transmission Date: 20111010
  Serious: Yes (Other)
  Sender: FDA-Public Use
  Company Number: US-BAYER-2011-038672

PATIENT
  Sex: Female

DRUGS (14)
  1. GADOLITE [Suspect]
     Indication: NUCLEAR MAGNETIC RESONANCE IMAGING BRAIN
     Dosage: UNK
     Dates: start: 20020717, end: 20020717
  2. AMIODARONE HCL [Concomitant]
  3. NEURONTIN [Concomitant]
  4. NEXIUM [Concomitant]
  5. GANCICLOVIR [Concomitant]
  6. DAPSONE [Concomitant]
  7. MAGNEVIST [Suspect]
     Indication: VENOGRAM
  8. PROGRAF [Concomitant]
  9. GADOLITE [Suspect]
     Indication: NUCLEAR MAGNETIC RESONANCE IMAGING
     Dosage: UNK
     Dates: start: 20040517, end: 20040517
  10. MAGNEVIST [Suspect]
     Indication: ANGIOGRAM
  11. GADOLITE [Suspect]
  12. MAGNEVIST [Suspect]
     Indication: NUCLEAR MAGNETIC RESONANCE IMAGING
     Dosage: UNK
     Dates: start: 20040405, end: 20040405
  13. MELPHALAN HYDROCHLORIDE [Concomitant]
  14. ALLOPURINOL [Concomitant]

REACTIONS (16)
  - SKIN PLAQUE [None]
  - SKIN HYPOPIGMENTATION [None]
  - NEPHROGENIC SYSTEMIC FIBROSIS [None]
  - SKIN DISCOLOURATION [None]
  - PARAESTHESIA [None]
  - PAIN IN EXTREMITY [None]
  - SKIN TIGHTNESS [None]
  - SKIN HYPERPIGMENTATION [None]
  - BONE PAIN [None]
  - SKIN SWELLING [None]
  - MUSCULAR WEAKNESS [None]
  - SKIN DISORDER [None]
  - RASH PAPULAR [None]
  - OEDEMA PERIPHERAL [None]
  - ARTHRALGIA [None]
  - SKIN INDURATION [None]
